FAERS Safety Report 22106508 (Version 2)
Quarter: 2023Q1

REPORT INFORMATION
  Report Type: Spontaneous
  Country: US (occurrence: US)
  Receive Date: 20230317
  Receipt Date: 20230317
  Transmission Date: 20230418
  Serious: Yes (Other)
  Sender: FDA-Public Use
  Company Number: US-SANOFI-01517192

PATIENT
  Age: 30 Year
  Sex: Male

DRUGS (1)
  1. DUPIXENT [Suspect]
     Active Substance: DUPILUMAB
     Indication: Nasal polyps
     Dosage: UNK
     Dates: start: 202211

REACTIONS (10)
  - Choking [Unknown]
  - Cough [Unknown]
  - Sinus disorder [Unknown]
  - Condition aggravated [Unknown]
  - Nasal polyps [Unknown]
  - Condition aggravated [Unknown]
  - Productive cough [Unknown]
  - Oropharyngeal discomfort [Unknown]
  - Secretion discharge [Unknown]
  - Intentional dose omission [Unknown]
